FAERS Safety Report 12137002 (Version 1)
Quarter: 2016Q1

REPORT INFORMATION
  Report Type: Spontaneous
  Country: US (occurrence: US)
  Receive Date: 20160302
  Receipt Date: 20160302
  Transmission Date: 20160526
  Serious: No
  Sender: FDA-Public Use
  Company Number: US-PERRIGO-15US008054

PATIENT
  Age: 40 Year
  Sex: Female
  Weight: 63.49 kg

DRUGS (1)
  1. LOPERAMIDE HYDROCHLORIDE 2 MG 960 [Suspect]
     Active Substance: LOPERAMIDE HYDROCHLORIDE
     Indication: DIARRHOEA
     Dosage: 4 MG AFTER THE 1ST LOOSE STOOL, 2 MG AFTER TWO SUBSEQUENT LOOSE STOOLS, QD
     Route: 048
     Dates: start: 20150731, end: 20150804

REACTIONS (2)
  - Incorrect drug administration duration [Recovered/Resolved]
  - Drug ineffective [Unknown]

NARRATIVE: CASE EVENT DATE: 20150731
